FAERS Safety Report 7878615-8 (Version None)
Quarter: 2011Q4

REPORT INFORMATION
  Report Type: 
  Country: None (occurrence: None)
  Receive Date: 20111014
  Receipt Date: 20101027
  Transmission Date: 20120403
  Serious: Yes (Other)
  Sender: FDA-Public Use
  Company Number: 10000015444

PATIENT
  Age: 61 Year
  Sex: Female

DRUGS (5)
  1. SIMVASTATIN [Concomitant]
  2. COUMADIN [Concomitant]
  3. VESICARE [Concomitant]
  4. LEXAPRO [Suspect]
     Indication: DEPRESSION
     Dosage: 20 MG (20 MG, 1 IN 1 D),ORAL
     Route: 048
     Dates: start: 20080101, end: 20100730
  5. LEXAPRO [Suspect]
     Indication: DEPRESSION
     Dosage: 20 MG (20 MG, 1 IN 1 D),ORAL
     Route: 048
     Dates: start: 20100101

REACTIONS (2)
  - ANGIOEDEMA [None]
  - URTICARIA [None]
